FAERS Safety Report 17134230 (Version 1)
Quarter: 2019Q4

REPORT INFORMATION
  Report Type: Spontaneous
  Country: US (occurrence: US)
  Receive Date: 20191209
  Receipt Date: 20191209
  Transmission Date: 20200122
  Serious: No
  Sender: FDA-Public Use
  Company Number: None

PATIENT
  Age: 43 Year
  Sex: Female
  Weight: 62.6 kg

DRUGS (3)
  1. MIRENA [Suspect]
     Active Substance: LEVONORGESTREL
  2. ALEVE [Concomitant]
     Active Substance: NAPROXEN SODIUM
  3. DICYCLOMINE 20MG [Concomitant]

REACTIONS (8)
  - Trichorrhexis [None]
  - Breast neoplasm [None]
  - Heart rate irregular [None]
  - Ear disorder [None]
  - Tinnitus [None]
  - Headache [None]
  - Uterine neoplasm [None]
  - Dyschezia [None]

NARRATIVE: CASE EVENT DATE: 20191111
